FAERS Safety Report 17428751 (Version 2)
Quarter: 2020Q1

REPORT INFORMATION
  Report Type: Report from Study
  Country: US (occurrence: US)
  Receive Date: 20200217
  Receipt Date: 20200324
  Transmission Date: 20200409
  Serious: No
  Sender: FDA-Public Use
  Company Number: US-009507513-2002USA004453

PATIENT
  Age: 19 Year
  Sex: Female
  Weight: 86.62 kg

DRUGS (1)
  1. IMPLANON [Suspect]
     Active Substance: ETONOGESTREL
     Dosage: 68 MILLIGRAM IMPLANT, LEFT ARM, EVERY THREE YEARS
     Route: 059
     Dates: start: 20200109, end: 20200113

REACTIONS (3)
  - No adverse event [Unknown]
  - Device expulsion [Recovered/Resolved]
  - Intentional product use issue [Unknown]

NARRATIVE: CASE EVENT DATE: 202001
